FAERS Safety Report 10267420 (Version 1)
Quarter: 2014Q2

REPORT INFORMATION
  Report Type: Spontaneous
  Country: US (occurrence: US)
  Receive Date: 20140630
  Receipt Date: 20140630
  Transmission Date: 20141212
  Serious: Yes (Other)
  Sender: FDA-Public Use
  Company Number: US-MYLANLABS-2014S1014545

PATIENT
  Age: 65 Year
  Sex: Male

DRUGS (2)
  1. ITRACONAZOLE [Suspect]
     Indication: PROSTATE CANCER RECURRENT
     Route: 065
     Dates: start: 201210
  2. ITRACONAZOLE [Suspect]
     Indication: OFF LABEL USE
     Route: 065
     Dates: start: 201210

REACTIONS (4)
  - Hyperbilirubinaemia [Recovered/Resolved]
  - Fatigue [Recovered/Resolved]
  - Hypoaldosteronism [Recovering/Resolving]
  - Blood corticotrophin increased [Recovering/Resolving]
